FAERS Safety Report 17191147 (Version 3)
Quarter: 2020Q1

REPORT INFORMATION
  Report Type: Spontaneous
  Country: US (occurrence: US)
  Receive Date: 20191223
  Receipt Date: 20200206
  Transmission Date: 20200409
  Serious: No
  Sender: FDA-Public Use
  Company Number: NVSC2019US074825

PATIENT
  Sex: Female

DRUGS (1)
  1. BETOPTIC S [Suspect]
     Active Substance: BETAXOLOL HYDROCHLORIDE
     Indication: PRODUCT USED FOR UNKNOWN INDICATION
     Route: 065

REACTIONS (7)
  - Ocular hyperaemia [Unknown]
  - Vision blurred [Unknown]
  - Headache [Unknown]
  - Drug ineffective [Unknown]
  - Blood pressure increased [Unknown]
  - Dizziness [Unknown]
  - Depression [Unknown]
